FAERS Safety Report 20536290 (Version 1)
Quarter: 2022Q1

REPORT INFORMATION
  Report Type: Other
  Country: GB (occurrence: GB)
  Receive Date: 20220302
  Receipt Date: 20220302
  Transmission Date: 20220423
  Serious: Yes (Hospitalization, Other)
  Sender: FDA-Public Use
  Company Number: None

PATIENT
  Age: 71 Year
  Sex: Female

DRUGS (6)
  1. SERTRALINE HYDROCHLORIDE [Suspect]
     Active Substance: SERTRALINE HYDROCHLORIDE
     Indication: Abnormal behaviour
     Dosage: 50 MG, QD
     Route: 065
     Dates: start: 202107
  2. SERTRALINE HYDROCHLORIDE [Suspect]
     Active Substance: SERTRALINE HYDROCHLORIDE
     Indication: Depressed mood
     Dosage: 100 MG, QD
     Route: 065
     Dates: start: 20211223
  3. SERTRALINE HYDROCHLORIDE [Suspect]
     Active Substance: SERTRALINE HYDROCHLORIDE
     Indication: Mixed anxiety and depressive disorder
  4. CALCIUM CARBONATE\CHOLECALCIFEROL [Concomitant]
     Active Substance: CALCIUM CARBONATE\CHOLECALCIFEROL
     Indication: Osteopenia
     Dosage: 1 DOSAGE FORM, BID (ONE TABLET EACH MORNING AND EVENING ) 56 TABLET (TAKES PRN)
     Route: 048
     Dates: start: 20211203
  5. COCODAMOL [Concomitant]
     Active Substance: ACETAMINOPHEN\CODEINE PHOSPHATE
     Indication: Product used for unknown indication
     Dosage: UNK, QID 15MG/500MG TABLETS 1 OR 2 TABLET FOUR TIMES A DAY (PATIENT TAKES PRN,NEVER TAKES MORE THAN
     Route: 065
  6. DOCUSATE [Concomitant]
     Active Substance: DOCUSATE
     Indication: Product used for unknown indication
     Dosage: UNK (1-2 TABLETS ONCE OR TWICE A DAY AS NEEDED, 50 CAPSULE )
     Route: 065
     Dates: start: 20211018

REACTIONS (6)
  - Hallucination [Unknown]
  - Cellulitis [Unknown]
  - Delirium [Unknown]
  - Dementia [Unknown]
  - Confusional state [Unknown]
  - Depersonalisation/derealisation disorder [Unknown]
